FAERS Safety Report 24012607 (Version 1)
Quarter: 2024Q2

REPORT INFORMATION
  Report Type: Report from Study
  Country: CA (occurrence: CA)
  Receive Date: 20240626
  Receipt Date: 20240626
  Transmission Date: 20240716
  Serious: No
  Sender: FDA-Public Use
  Company Number: CA-JNJFOC-20240629820

PATIENT
  Age: 24 Year
  Sex: Male

DRUGS (1)
  1. SIMPONI [Suspect]
     Active Substance: GOLIMUMAB
     Indication: Colitis ulcerative
     Route: 058
     Dates: start: 20180121

REACTIONS (7)
  - Device leakage [Unknown]
  - Injection site pain [Unknown]
  - Accidental exposure to product [Unknown]
  - Product dose omission issue [Unknown]
  - Fatigue [Unknown]
  - Asthenia [Unknown]
  - Visual impairment [Unknown]

NARRATIVE: CASE EVENT DATE: 20240601
